FAERS Safety Report 9314756 (Version 1)
Quarter: 2013Q2

REPORT INFORMATION
  Report Type: Spontaneous
  Country: US (occurrence: US)
  Receive Date: 20130529
  Receipt Date: 20130529
  Transmission Date: 20140414
  Serious: Yes (Hospitalization)
  Sender: FDA-Public Use
  Company Number: US-ELI_LILLY_AND_COMPANY-US201305005231

PATIENT
  Sex: Female

DRUGS (11)
  1. CYMBALTA [Suspect]
     Indication: ANXIETY
     Dosage: 30 MG, UNKNOWN
  2. CYMBALTA [Suspect]
     Dosage: 60 MG, QD
  3. HYDROXYZINE [Concomitant]
     Dosage: UNK, UNKNOWN
  4. LAMICTAL [Concomitant]
     Dosage: UNK, UNKNOWN
  5. PEPCID [Concomitant]
     Dosage: UNK, UNKNOWN
  6. PRILOSEC [Concomitant]
     Dosage: UNK, UNKNOWN
  7. HYDROCHLOROTHIAZIDE [Concomitant]
     Dosage: UNK, UNKNOWN
  8. NORVASC [Concomitant]
     Dosage: UNK, UNKNOWN
  9. GASTROCROM [Concomitant]
     Dosage: UNK, UNKNOWN
  10. GLUCOPHAGE [Concomitant]
     Dosage: UNK, UNKNOWN
  11. BENTYL [Concomitant]
     Dosage: UNK, UNKNOWN

REACTIONS (8)
  - Nerve injury [Unknown]
  - Alopecia [Not Recovered/Not Resolved]
  - Bruxism [Recovered/Resolved]
  - Muscle tightness [Recovered/Resolved]
  - Yawning [Recovered/Resolved]
  - Nausea [Recovered/Resolved]
  - Vomiting [Recovered/Resolved]
  - Hyperhidrosis [Not Recovered/Not Resolved]
